FAERS Safety Report 6238326-1 (Version None)
Quarter: 2009Q2

REPORT INFORMATION
  Report Type: 
  Country: None (occurrence: None)
  Receive Date: 20090617
  Receipt Date: 20080319
  Transmission Date: 20091009
  Serious: No
  Sender: FDA-Public Use
  Company Number: 273354

PATIENT
  Age: 70 Year
  Sex: Male

DRUGS (9)
  1. LEVEMIR [Suspect]
     Indication: INSULIN-REQUIRING TYPE 2 DIABETES MELLITUS
     Dosage: 60 LU, SUBCUTANEOUS
     Route: 058
     Dates: start: 20080206
  2. ASPIRIN [Concomitant]
  3. ISOSORBIDE [Concomitant]
  4. TRICOR [Concomitant]
  5. GLYBURIDE [Concomitant]
  6. HYDROCHLOROTHIAZIDE [Concomitant]
  7. OMEPRAZOLE [Concomitant]
  8. RANEXA (RANOLAZINE) [Concomitant]
  9. METOPROLOL [Concomitant]

REACTIONS (1)
  - BLOOD GLUCOSE INCREASED [None]
